FAERS Safety Report 5850961-9 (Version None)
Quarter: 2008Q3

REPORT INFORMATION
  Report Type: 
  Country: None (occurrence: None)
  Receive Date: 20080820
  Receipt Date: 20080808
  Transmission Date: 20090109
  Serious: Yes (Life-Threatening, Other)
  Sender: FDA-Public Use
  Company Number: BR-BAYER-200824253GPV

PATIENT
  Age: 31 Year
  Sex: Male

DRUGS (4)
  1. FLUDARABINE [Suspect]
     Indication: STEM CELL TRANSPLANT
     Route: 065
  2. BUSULFAN [Suspect]
     Indication: STEM CELL TRANSPLANT
     Route: 065
  3. CYCLOSPORINE [Suspect]
     Indication: IMMUNOSUPPRESSION
     Route: 065
  4. METHOTREXATE SODIUM [Suspect]
     Indication: IMMUNOSUPPRESSION

REACTIONS (7)
  - ACUTE GRAFT VERSUS HOST DISEASE [None]
  - ACUTE GRAFT VERSUS HOST DISEASE IN INTESTINE [None]
  - ACUTE GRAFT VERSUS HOST DISEASE IN SKIN [None]
  - DIARRHOEA [None]
  - LOWER GASTROINTESTINAL HAEMORRHAGE [None]
  - MUCOSAL INFLAMMATION [None]
  - RASH MACULO-PAPULAR [None]
